FAERS Safety Report 19047256 (Version 1)
Quarter: 2021Q1

REPORT INFORMATION
  Report Type: Spontaneous
  Country: DE (occurrence: DE)
  Receive Date: 20210323
  Receipt Date: 20210323
  Transmission Date: 20210420
  Serious: Yes (Other)
  Sender: FDA-Public Use
  Company Number: DE-GLAXOSMITHKLINE-DECH2021EME014111

PATIENT
  Sex: Female

DRUGS (9)
  1. IBUPROFEN. [Suspect]
     Active Substance: IBUPROFEN
     Indication: EXOSTOSIS
     Dosage: 600 MG
     Route: 065
     Dates: start: 20210220
  2. CLINDAMYCIN. [Suspect]
     Active Substance: CLINDAMYCIN
     Indication: PRODUCT USED FOR UNKNOWN INDICATION
  3. ARIPIPRAZOLE. [Suspect]
     Active Substance: ARIPIPRAZOLE
     Indication: PRODUCT USED FOR UNKNOWN INDICATION
     Dosage: 15 MG, QD
     Route: 065
  4. SINUPRET FORTE [Suspect]
     Active Substance: DIETARY SUPPLEMENT\HERBALS
     Indication: NASAL CRUSTING
     Dosage: UNK
     Route: 048
  5. CORTISONE [Suspect]
     Active Substance: CORTISONE
     Indication: PRODUCT USED FOR UNKNOWN INDICATION
     Dosage: UNK
  6. ARIPIPRAZOLE. [Suspect]
     Active Substance: ARIPIPRAZOLE
     Dosage: 10 MG, QD
  7. OCREVUS [Suspect]
     Active Substance: OCRELIZUMAB
     Dosage: UNK
     Dates: start: 20180712
  8. OCREVUS [Suspect]
     Active Substance: OCRELIZUMAB
     Indication: RELAPSING-REMITTING MULTIPLE SCLEROSIS
     Dosage: 600 MG, QD
     Route: 042
     Dates: start: 20190205
  9. ARIPIPRAZOLE. [Suspect]
     Active Substance: ARIPIPRAZOLE
     Dosage: 10 MG, QD

REACTIONS (55)
  - Vertigo positional [Recovered/Resolved]
  - Erythema [Recovered/Resolved]
  - Malaise [Recovered/Resolved]
  - Diarrhoea [Recovered/Resolved]
  - Joint dislocation [Recovered/Resolved]
  - Pain [Recovering/Resolving]
  - Exostosis [Not Recovered/Not Resolved]
  - Angular cheilitis [Recovered/Resolved]
  - Muscle tightness [Recovered/Resolved]
  - Lymphadenopathy [Recovered/Resolved]
  - Onychomycosis [Recovered/Resolved]
  - Nasopharyngitis [Recovered/Resolved]
  - Progesterone decreased [Unknown]
  - Weight increased [Recovered/Resolved]
  - Oestradiol increased [Unknown]
  - Body temperature increased [Recovered/Resolved]
  - Vaginal haemorrhage [Recovered/Resolved]
  - Mood swings [Recovered/Resolved]
  - Myalgia [Recovered/Resolved]
  - Hypoaesthesia [Recovered/Resolved]
  - Blood oestrogen increased [Unknown]
  - Fear of disease [Not Recovered/Not Resolved]
  - Breath sounds abnormal [Recovering/Resolving]
  - Intervertebral disc protrusion [Not Recovered/Not Resolved]
  - Pain in extremity [Recovered/Resolved]
  - Erythema [Recovered/Resolved]
  - Lacrimal disorder [Unknown]
  - Dry eye [Recovered/Resolved]
  - Listless [Recovered/Resolved]
  - Acne [Recovering/Resolving]
  - Insomnia [Recovered/Resolved]
  - Tendon disorder [Unknown]
  - Back pain [Unknown]
  - Urine analysis abnormal [Recovered/Resolved]
  - Vitamin D decreased [Recovered/Resolved]
  - Pruritus [Recovered/Resolved]
  - Autoinflammatory disease [Recovered/Resolved]
  - Red blood cell sedimentation rate increased [Recovered/Resolved]
  - Multiple sclerosis relapse [Recovered/Resolved]
  - Panic attack [Recovered/Resolved]
  - Depressed mood [Recovered/Resolved]
  - Hypersensitivity [Unknown]
  - Dyspnoea [Recovered/Resolved]
  - Skin disorder [Unknown]
  - Drug level increased [Recovered/Resolved]
  - Influenza [Recovered/Resolved]
  - Paraesthesia [Recovered/Resolved]
  - Headache [Recovered/Resolved]
  - Heart rate increased [Recovered/Resolved]
  - Asthenia [Recovered/Resolved]
  - Nasal dryness [Recovered/Resolved]
  - Inappropriate schedule of product administration [Unknown]
  - Menstruation irregular [Recovered/Resolved]
  - Memory impairment [Recovered/Resolved]
  - Fatigue [Recovered/Resolved]

NARRATIVE: CASE EVENT DATE: 20180712
